FAERS Safety Report 16150361 (Version 4)
Quarter: 2019Q2

REPORT INFORMATION
  Report Type: Report from Study
  Country: US (occurrence: US)
  Receive Date: 20190402
  Receipt Date: 20190624
  Transmission Date: 20190711
  Serious: Yes (Death, Hospitalization)
  Sender: FDA-Public Use
  Company Number: US-ACTELION-A-US2015-113846

PATIENT
  Age: 60 Year
  Sex: Female

DRUGS (16)
  1. METHADONE [Concomitant]
     Active Substance: METHADONE HYDROCHLORIDE
  2. SERTRALINE [Concomitant]
     Active Substance: SERTRALINE HYDROCHLORIDE
  3. REMODULIN [Suspect]
     Active Substance: TREPROSTINIL
     Indication: PRODUCT USED FOR UNKNOWN INDICATION
     Dosage: 79 NG/KG, PER MIN
     Route: 042
     Dates: start: 20150130
  4. FLUCONAZOLE. [Concomitant]
     Active Substance: FLUCONAZOLE
  5. WARFARIN [Concomitant]
     Active Substance: WARFARIN
  6. SPIRIVA [Concomitant]
     Active Substance: TIOTROPIUM BROMIDE MONOHYDRATE
  7. TYLENOL [Concomitant]
     Active Substance: ACETAMINOPHEN
  8. SIMVASTATIN. [Concomitant]
     Active Substance: SIMVASTATIN
  9. REMODULIN [Suspect]
     Active Substance: TREPROSTINIL
     Dosage: 77 NG/KG, PER MIN
     Route: 042
     Dates: start: 20150130
  10. GABAPENTIN. [Concomitant]
     Active Substance: GABAPENTIN
  11. ADVAIR HFA [Concomitant]
     Active Substance: FLUTICASONE PROPIONATE\SALMETEROL XINAFOATE
  12. FUROSEMIDE. [Concomitant]
     Active Substance: FUROSEMIDE
  13. SPIRONOLACTONE. [Concomitant]
     Active Substance: SPIRONOLACTONE
  14. OPSUMIT [Suspect]
     Active Substance: MACITENTAN
     Indication: PULMONARY ARTERIAL HYPERTENSION
     Dosage: 10 MG, QD
     Route: 048
     Dates: start: 20150122
  15. ALPRAZOLAM. [Concomitant]
     Active Substance: ALPRAZOLAM
  16. ELIQUIS [Concomitant]
     Active Substance: APIXABAN

REACTIONS (12)
  - Muscle strain [Unknown]
  - Chest discomfort [Unknown]
  - Spinal fracture [Unknown]
  - Cough [Unknown]
  - Pneumonia [Not Recovered/Not Resolved]
  - Respiratory distress [Not Recovered/Not Resolved]
  - Dizziness [Recovered/Resolved]
  - Hallucination [Not Recovered/Not Resolved]
  - Syncope [Unknown]
  - Death [Fatal]
  - Dyspnoea [Unknown]
  - Back pain [Unknown]

NARRATIVE: CASE EVENT DATE: 20150216
